FAERS Safety Report 21355813 (Version 1)
Quarter: 2022Q3

REPORT INFORMATION
  Report Type: Spontaneous
  Country: DE (occurrence: DE)
  Receive Date: 20220920
  Receipt Date: 20220920
  Transmission Date: 20221027
  Serious: Yes (Other)
  Sender: FDA-Public Use
  Company Number: DE-UCBSA-2022055353

PATIENT
  Sex: Female

DRUGS (5)
  1. FINTEPLA [Interacting]
     Active Substance: FENFLURAMINE
     Indication: Product used for unknown indication
     Dosage: 2.2MG/ML UNK
     Route: 048
  2. CLOBAZAM [Interacting]
     Active Substance: CLOBAZAM
     Indication: Product used for unknown indication
     Dosage: UNK
  3. STIRIPENTOL [Interacting]
     Active Substance: STIRIPENTOL
     Indication: Product used for unknown indication
     Dosage: UNK
  4. CANNABIS SATIVA SUBSP. INDICA TOP [Interacting]
     Active Substance: CANNABIS SATIVA SUBSP. INDICA TOP
     Indication: Product used for unknown indication
     Dosage: UNK
  5. VALPROATE [Interacting]
     Active Substance: VALPROIC ACID
     Indication: Product used for unknown indication
     Dosage: UNK

REACTIONS (3)
  - Hepatic failure [Unknown]
  - Muscle spasms [Unknown]
  - Drug interaction [Unknown]
